FAERS Safety Report 7413392-6 (Version None)
Quarter: 2011Q2

REPORT INFORMATION
  Report Type: 
  Country: None (occurrence: None)
  Receive Date: 20110413
  Receipt Date: 20110407
  Transmission Date: 20111010
  Serious: Yes (Hospitalization)
  Sender: FDA-Public Use
  Company Number: US-PFIZER INC-US-WYE-H13817010

PATIENT
  Sex: Female
  Weight: 81 kg

DRUGS (6)
  1. CHANTIX [Suspect]
     Dosage: UNK
     Route: 048
     Dates: start: 20090101, end: 20090801
  2. EFFEXOR [Suspect]
     Dosage: UNK
  3. CHANTIX [Suspect]
     Dosage: STARTER PACK
     Route: 048
     Dates: start: 20091022, end: 20090101
  4. METOPROLOL [Concomitant]
     Indication: HYPERTENSION
     Dosage: UNK
  5. CHANTIX [Suspect]
     Indication: SMOKING CESSATION THERAPY
     Dosage: 0.5 MG, 1X/DAY
     Route: 048
     Dates: end: 20090601
  6. CHANTIX [Suspect]
     Dosage: 1 MG, 2X/DAY
     Route: 048
     Dates: start: 20090101

REACTIONS (4)
  - RASH [None]
  - URTICARIA [None]
  - HYPERSENSITIVITY [None]
  - WOUND [None]
